FAERS Safety Report 6538371-2 (Version None)
Quarter: 2010Q1

REPORT INFORMATION
  Report Type: 
  Country: None (occurrence: None)
  Receive Date: 20100114
  Receipt Date: 20100112
  Transmission Date: 20100710
  Serious: Yes (Hospitalization, Other)
  Sender: FDA-Public Use
  Company Number: GBWYE603208MAY07

PATIENT
  Age: 9 Year
  Sex: Female

DRUGS (6)
  1. IBUPROFEN [Suspect]
     Indication: MENINGOCOCCAL SEPSIS
     Dosage: UNKNOWN
     Route: 048
  2. IBUPROFEN [Suspect]
     Indication: PYREXIA
  3. ACETAMINOPHEN [Suspect]
     Indication: PYREXIA
     Dosage: UNKNOWN
     Route: 048
  4. ACETAMINOPHEN [Suspect]
     Indication: MENINGOCOCCAL SEPSIS
  5. CEFTRIAXONE [Suspect]
     Indication: MENINGOCOCCAL SEPSIS
     Dosage: UNKNOWN
     Route: 042
  6. CEFTRIAXONE [Suspect]
     Indication: PYREXIA

REACTIONS (8)
  - ACCIDENTAL OVERDOSE [None]
  - HYDRONEPHROSIS [None]
  - HYDROURETER [None]
  - MEDICATION ERROR [None]
  - POLYURIA [None]
  - RENAL FAILURE ACUTE [None]
  - RENAL PAPILLARY NECROSIS [None]
  - URETERIC OBSTRUCTION [None]
